FAERS Safety Report 5704029-2 (Version None)
Quarter: 2008Q2

REPORT INFORMATION
  Report Type: 
  Country: None (occurrence: None)
  Receive Date: 20080409
  Receipt Date: 20080326
  Transmission Date: 20081010
  Serious: Yes (Other)
  Sender: FDA-Public Use
  Company Number: B0515215A

PATIENT
  Age: 85 Year
  Sex: Female

DRUGS (9)
  1. PROPAFENONE (FORMULATION UNKNOWN) (PROPAFENONE) (GENERIC) [Suspect]
     Dosage: 150 MG / TWICE PER DAY /
  2. VENLAFAXINE HCL [Suspect]
     Indication: AFFECTIVE DISORDER
     Dates: start: 20060403
  3. RAMIPRIL [Concomitant]
  4. TICLOPIDINE HCL [Concomitant]
  5. TORSEMIDE [Concomitant]
  6. THEOPHYLLINE [Concomitant]
  7. PARACETAMOL [Concomitant]
  8. TRIAZOLAM [Concomitant]
  9. SERTRALINE [Concomitant]

REACTIONS (4)
  - DRUG EFFECT DECREASED [None]
  - DRUG LEVEL INCREASED [None]
  - HALLUCINATION, VISUAL [None]
  - PSYCHOMOTOR HYPERACTIVITY [None]
